FAERS Safety Report 9711155 (Version 2)
Quarter: 2013Q4

REPORT INFORMATION
  Report Type: Spontaneous
  Country: US (occurrence: US)
  Receive Date: 20131126
  Receipt Date: 20131126
  Transmission Date: 20140711
  Serious: No
  Sender: FDA-Public Use
  Company Number: US-BRISTOL-MYERS SQUIBB COMPANY-19175322

PATIENT
  Age: 75 Year
  Sex: Female

DRUGS (2)
  1. BYETTA [Suspect]
     Indication: TYPE 2 DIABETES MELLITUS
     Dosage: AFTER ONE MONTH OF 5 MCG,DOSE INCREASED:10MCG,BID, AGAIN REDUCED:5MCG,BID?5 INJ
  2. PREVACID [Concomitant]
     Indication: BARRETT^S OESOPHAGUS

REACTIONS (3)
  - Nausea [Unknown]
  - Dyspepsia [Unknown]
  - Drug dose omission [Unknown]
